FAERS Safety Report 6881684-5 (Version None)
Quarter: 2010Q3

REPORT INFORMATION
  Report Type: 
  Country: None (occurrence: None)
  Receive Date: 20100729
  Receipt Date: 20100720
  Transmission Date: 20110219
  Serious: No
  Sender: FDA-Public Use
  Company Number: US-BIOGENIDEC-2010BI025295

PATIENT
  Age: 29 Year
  Sex: Female

DRUGS (4)
  1. TYSABRI [Suspect]
     Indication: MULTIPLE SCLEROSIS
     Route: 042
     Dates: start: 20070925, end: 20080923
  2. TYSABRI [Suspect]
     Route: 042
     Dates: start: 20090826
  3. ACETAMINOPHEN [Concomitant]
  4. BENADRYL [Concomitant]

REACTIONS (1)
  - FATIGUE [None]
